FAERS Safety Report 13763334 (Version 1)
Quarter: 2017Q3

REPORT INFORMATION
  Report Type: Spontaneous
  Country: FR (occurrence: FR)
  Receive Date: 20170718
  Receipt Date: 20170718
  Transmission Date: 20171127
  Serious: Yes (Hospitalization)
  Sender: FDA-Public Use
  Company Number: FR-ALLERGAN-1729752US

PATIENT
  Age: 73 Year
  Sex: Female

DRUGS (3)
  1. OFLOCET [Suspect]
     Active Substance: OFLOXACIN
     Indication: PYELONEPHRITIS
     Dosage: 200 MG, BID
     Route: 048
     Dates: start: 20170601, end: 20170608
  2. AUGMENTIN [Suspect]
     Active Substance: AMOXICILLIN\CLAVULANATE POTASSIUM
     Indication: PYELONEPHRITIS
     Dosage: 1 DF, TID
     Route: 048
     Dates: start: 20170601, end: 20170608
  3. FOSFOMYCIN TROMETHAMINE - BP [Suspect]
     Active Substance: FOSFOMYCIN TROMETHAMINE
     Indication: PYELONEPHRITIS
     Dosage: 1 DF, UNK
     Route: 048
     Dates: start: 201706, end: 201706

REACTIONS (4)
  - Hepatitis [Recovering/Resolving]
  - Off label use [Unknown]
  - Vomiting [Recovering/Resolving]
  - Abdominal pain upper [Recovering/Resolving]
